FAERS Safety Report 9372936 (Version 1)
Quarter: 2013Q2

REPORT INFORMATION
  Report Type: Spontaneous
  Country: US (occurrence: US)
  Receive Date: 20130627
  Receipt Date: 20130627
  Transmission Date: 20140414
  Serious: Yes (Other)
  Sender: FDA-Public Use
  Company Number: US-BAYER-2013-077057

PATIENT
  Age: 56 Year
  Sex: Male
  Weight: 97.05 kg

DRUGS (2)
  1. ALKA-SELTZER ORIGINAL [Suspect]
     Indication: DYSPEPSIA
     Dosage: 2 DF, UNK
     Dates: start: 201303
  2. LANTUS [Concomitant]

REACTIONS (2)
  - Intentional overdose [None]
  - Constipation [None]
